FAERS Safety Report 7240175-2 (Version None)
Quarter: 2011Q1

REPORT INFORMATION
  Report Type: 
  Country: None (occurrence: None)
  Receive Date: 20110113
  Receipt Date: 20101229
  Transmission Date: 20110831
  Serious: Yes (Hospitalization)
  Sender: FDA-Public Use
  Company Number: 2010US000106

PATIENT
  Age: 60 Year
  Sex: Male

DRUGS (5)
  1. TERAZOSIN [Concomitant]
  2. HYDROCHLOROTHIAZIDE [Concomitant]
  3. ENTEREG [Suspect]
     Indication: POSTOPERATIVE ILEUS
     Dosage: 12 MG; PO
     Route: 048
     Dates: start: 20090316, end: 20090319
  4. LISINOPRIL [Concomitant]
  5. ALLEGRA D 24 HOUR [Concomitant]

REACTIONS (1)
  - ATRIAL FLUTTER [None]
